FAERS Safety Report 4892254-2 (Version None)
Quarter: 2006Q1

REPORT INFORMATION
  Report Type: 
  Country: None (occurrence: None)
  Receive Date: 20060125
  Receipt Date: 20060125
  Transmission Date: 20060701
  Serious: Yes (Other)
  Sender: FDA-Public Use
  Company Number: None

PATIENT
  Sex: Male

DRUGS (2)
  1. ERYTHROMYCIN OPHTHALMIC OINTMENT   0.5%  -1GM TUBE-  FOUGERA [Suspect]
     Indication: EYE INFECTION
     Dosage: APPLIED TO EYES   ONCE   OPHTHALMIC  (SINGLE DOSE ON 1/17/06)
     Route: 047
     Dates: start: 20060117
  2. ERYTHROMYCIN OPHTHALMIC OINTMENT   0.5%  -1GM TUBE-  FOUGERA [Suspect]
     Indication: PROPHYLAXIS
     Dosage: APPLIED TO EYES   ONCE   OPHTHALMIC  (SINGLE DOSE ON 1/17/06)
     Route: 047
     Dates: start: 20060117

REACTIONS (3)
  - APPLICATION SITE ERYTHEMA [None]
  - APPLICATION SITE OEDEMA [None]
  - NEONATAL DISORDER [None]
